FAERS Safety Report 6344147-1 (Version None)
Quarter: 2009Q3

REPORT INFORMATION
  Report Type: 
  Country: None (occurrence: None)
  Receive Date: 20090903
  Receipt Date: 20090903
  Transmission Date: 20100115
  Serious: No
  Sender: FDA-Public Use
  Company Number: None

PATIENT
  Sex: Female
  Weight: 66.7 kg

DRUGS (1)
  1. ZOMETA [Suspect]
     Dosage: 4 MG
     Dates: end: 20090317

REACTIONS (2)
  - OSTEONECROSIS [None]
  - TOOTH INFECTION [None]
